FAERS Safety Report 7402969-X (Version None)
Quarter: 2011Q2

REPORT INFORMATION
  Report Type: 
  Country: None (occurrence: None)
  Receive Date: 20110408
  Receipt Date: 20110315
  Transmission Date: 20111010
  Serious: No
  Sender: FDA-Public Use
  Company Number: US-B.I. PHARMACEUTICALS,INC./RIDGEFIELD-2011-BP-03925BP

PATIENT
  Age: 90 Year
  Sex: Female

DRUGS (2)
  1. PRADAXA [Suspect]
     Indication: ATRIAL FIBRILLATION
     Dosage: 300 MG
     Route: 048
     Dates: start: 20110204
  2. NEXIUM [Concomitant]
     Indication: HIATUS HERNIA
     Route: 048

REACTIONS (6)
  - DIARRHOEA [None]
  - FAECAL INCONTINENCE [None]
  - DYSPEPSIA [None]
  - SKIN IRRITATION [None]
  - GASTROOESOPHAGEAL REFLUX DISEASE [None]
  - SKIN HAEMORRHAGE [None]
